FAERS Safety Report 8158168-X (Version None)
Quarter: 2012Q1

REPORT INFORMATION
  Report Type: 
  Country: None (occurrence: None)
  Receive Date: 20120222
  Receipt Date: 20120213
  Transmission Date: 20120608
  Serious: Yes (Other)
  Sender: FDA-Public Use
  Company Number: JP-ASTRAZENECA-2011SE55683

PATIENT
  Age: 32472 Day
  Sex: Female
  Weight: 36 kg

DRUGS (6)
  1. SEROQUEL [Suspect]
     Indication: DEMENTIA ALZHEIMER'S TYPE
     Route: 048
     Dates: start: 20110614, end: 20110908
  2. AMOBAN [Suspect]
     Route: 048
     Dates: start: 20110909
  3. MELOXICAM [Suspect]
     Indication: FEMORAL NECK FRACTURE
     Route: 048
     Dates: start: 20110622
  4. LANSOPRAZOLE [Suspect]
     Indication: FEMORAL NECK FRACTURE
     Route: 048
     Dates: start: 20110622
  5. SEROQUEL [Suspect]
     Route: 048
     Dates: start: 20110909
  6. AMOBAN [Suspect]
     Indication: SLEEP DISORDER
     Route: 048
     Dates: start: 20110614, end: 20110908

REACTIONS (2)
  - COMA [None]
  - OFF LABEL USE [None]
